FAERS Safety Report 13666686 (Version 1)
Quarter: 2017Q2

REPORT INFORMATION
  Report Type: Spontaneous
  Country: US (occurrence: US)
  Receive Date: 20170619
  Receipt Date: 20170619
  Transmission Date: 20170830
  Serious: No
  Sender: FDA-Public Use
  Company Number: US-ROCHE-758466

PATIENT
  Sex: Male

DRUGS (1)
  1. XELODA [Suspect]
     Active Substance: CAPECITABINE
     Indication: COLON CANCER
     Dosage: 1000 MG IN THE MORNING?1500 MG IN THE EVENING?TAKEN FOR YEARS?THERAPY WAS 01 WEEK ON AND 01 WEEK OFF
     Route: 048

REACTIONS (1)
  - Wrong technique in product usage process [Unknown]
